FAERS Safety Report 9500260 (Version 1)
Quarter: 2013Q3

REPORT INFORMATION
  Report Type: Spontaneous
  Country: US (occurrence: None)
  Receive Date: 20130904
  Receipt Date: 20130904
  Transmission Date: 20140515
  Serious: Yes (Life-Threatening)
  Sender: FDA-Public Use
  Company Number: None

PATIENT
  Age: 33 Year
  Sex: Female
  Weight: 53.52 kg

DRUGS (4)
  1. LACOSAMIDE 150 MG UCB [Suspect]
     Indication: EPILEPSY
     Dosage: 1 PILL BID ORAL
     Route: 048
     Dates: start: 20130722
  2. KEPPRA [Concomitant]
  3. ZOLOFT [Concomitant]
  4. MVI + FOLATE [Concomitant]

REACTIONS (5)
  - Intentional self-injury [None]
  - Depression [None]
  - Asthenia [None]
  - Apathy [None]
  - Suicidal behaviour [None]
